FAERS Safety Report 9394943 (Version 1)
Quarter: 2013Q3

REPORT INFORMATION
  Report Type: Spontaneous
  Country: US (occurrence: US)
  Receive Date: 20130711
  Receipt Date: 20130711
  Transmission Date: 20140515
  Serious: Yes (Other)
  Sender: FDA-Public Use
  Company Number: US-COVIDIEN/TYCO HEALTHCARE/MALLINCKRODT-T201203802

PATIENT
  Age: 41 Year
  Sex: Female

DRUGS (6)
  1. ROXICODONE [Suspect]
     Indication: PELVIC FRACTURE
     Dosage: 5 MG, TID
     Dates: start: 201205, end: 201205
  2. ZYRTEC [Concomitant]
     Indication: ANAPHYLAXIS TREATMENT
     Dosage: UNK
  3. ZANTAC [Concomitant]
     Indication: ANAPHYLAXIS TREATMENT
     Dosage: UNK
  4. PREDNISONE [Concomitant]
     Indication: ANAPHYLAXIS TREATMENT
     Dosage: UNK
  5. EPIPEN [Concomitant]
     Indication: ANAPHYLAXIS TREATMENT
     Dosage: UNK
  6. NORCO [Concomitant]
     Dosage: UNK
     Dates: start: 20120410

REACTIONS (1)
  - Anaphylactic reaction [Recovered/Resolved]
